FAERS Safety Report 6446771-4 (Version None)
Quarter: 2009Q4

REPORT INFORMATION
  Report Type: 
  Country: None (occurrence: None)
  Receive Date: 20091119
  Receipt Date: 20091106
  Transmission Date: 20100525
  Serious: Yes (Other)
  Sender: FDA-Public Use
  Company Number: PHEH2009US15718

PATIENT
  Sex: Female

DRUGS (1)
  1. RECLAST [Suspect]
     Dosage: UNK
     Dates: start: 20070101

REACTIONS (5)
  - ASTHENIA [None]
  - GAIT DISTURBANCE [None]
  - MUSCLE ATROPHY [None]
  - MYOPATHY [None]
  - WEIGHT DECREASED [None]
